FAERS Safety Report 9033521 (Version 5)
Quarter: 2014Q1

REPORT INFORMATION
  Report Type: Spontaneous
  Country: US (occurrence: US)
  Receive Date: 20130128
  Receipt Date: 20140212
  Transmission Date: 20141002
  Serious: Yes (Hospitalization, Disabling, Other)
  Sender: FDA-Public Use
  Company Number: US-009507513-1205USA00015

PATIENT
  Sex: Female
  Weight: 46.26 kg

DRUGS (7)
  1. FOSAMAX [Suspect]
     Indication: OSTEOPOROSIS
     Dosage: ONE DOSE DAILY, QD
     Route: 048
     Dates: end: 19990727
  2. FOSAMAX [Suspect]
     Indication: OSTEOPOROSIS PROPHYLAXIS
     Dosage: 70 MG, QW
     Route: 048
  3. FOSAMAX [Suspect]
     Indication: OSTEOPOROSIS
     Route: 048
  4. FOSAMAX [Suspect]
     Indication: OSTEOPOROSIS PROPHYLAXIS
  5. ALENDRONATE SODIUM [Suspect]
     Indication: OSTEOPOROSIS
     Dosage: 70 MG, QW
     Route: 048
     Dates: end: 20111007
  6. CALCIUM (UNSPECIFIED) [Concomitant]
     Indication: OSTEOPOROSIS
     Dosage: UNK UNK, BID
  7. VITAMIN D (UNSPECIFIED) [Concomitant]
     Indication: OSTEOPOROSIS
     Dosage: UNK UNK, BID

REACTIONS (18)
  - Femur fracture [Not Recovered/Not Resolved]
  - Intramedullary rod insertion [Unknown]
  - Low turnover osteopathy [Not Recovered/Not Resolved]
  - Colectomy [Unknown]
  - Cataract operation [Unknown]
  - Hypertension [Unknown]
  - Catheterisation cardiac [Unknown]
  - Large intestinal polypectomy [Unknown]
  - Large intestine polyp [Unknown]
  - Stress [Unknown]
  - Bursitis [Unknown]
  - Cerumen impaction [Unknown]
  - Large intestine benign neoplasm [Unknown]
  - Osteopenia [Unknown]
  - Carotid bruit [Unknown]
  - Impaired healing [Unknown]
  - Dizziness [Recovered/Resolved]
  - Oedema peripheral [Unknown]
